FAERS Safety Report 5713453-3 (Version None)
Quarter: 2008Q2

REPORT INFORMATION
  Report Type: 
  Country: None (occurrence: None)
  Receive Date: 20080422
  Receipt Date: 20080326
  Transmission Date: 20081010
  Serious: No
  Sender: FDA-Public Use
  Company Number: US-BOEHRINGER INGELHEIM GMBH, GERMANY-2008-BP-04669BP

PATIENT

DRUGS (1)
  1. CATAPRES-TTS-1 [Suspect]

REACTIONS (1)
  - RASH [None]
